FAERS Safety Report 13506850 (Version 1)
Quarter: 2017Q2

REPORT INFORMATION
  Report Type: Spontaneous
  Country: US (occurrence: US)
  Receive Date: 20170502
  Receipt Date: 20170502
  Transmission Date: 20170830
  Serious: No
  Sender: FDA-Public Use
  Company Number: US-BAUSCH-BL-2016-028314

PATIENT
  Age: 72 Year
  Sex: Female

DRUGS (3)
  1. LOTEMAX [Suspect]
     Active Substance: LOTEPREDNOL ETABONATE
     Indication: EYE PAIN
     Dosage: 2 DROPS ONCE DAILY FOR 1 WEEK
     Route: 047
     Dates: start: 20161102, end: 20161117
  2. LOTEMAX [Suspect]
     Active Substance: LOTEPREDNOL ETABONATE
     Indication: ASTHENOPIA
     Dosage: 1 DROP ONCE DAILY FOR 1 WEEK
     Route: 047
     Dates: start: 20161109, end: 20161117
  3. WARFARIN [Concomitant]
     Active Substance: WARFARIN
     Indication: LUNG DISORDER
     Dosage: 1 TABLET ONCE DAILY
     Route: 048
     Dates: start: 2007

REACTIONS (2)
  - Product container issue [Unknown]
  - Drug effect incomplete [Unknown]

NARRATIVE: CASE EVENT DATE: 20161114
